FAERS Safety Report 4288455-7 (Version None)
Quarter: 2004Q1

REPORT INFORMATION
  Report Type: 
  Country: None (occurrence: None)
  Receive Date: 20040204
  Receipt Date: 20040127
  Transmission Date: 20041129
  Serious: Yes (Other)
  Sender: FDA-Public Use
  Company Number: 200322538GDDC

PATIENT
  Age: 29 Year
  Sex: Female
  Weight: 74 kg

DRUGS (1)
  1. CLOMID [Suspect]
     Indication: INFERTILITY
     Dosage: 50 MG 5D/C PO
     Route: 048
     Dates: start: 20031006, end: 20031013

REACTIONS (1)
  - PYELONEPHRITIS [None]
